FAERS Safety Report 6343073-1 (Version None)
Quarter: 2009Q3

REPORT INFORMATION
  Report Type: 
  Country: None (occurrence: None)
  Receive Date: 20090908
  Receipt Date: 20090901
  Transmission Date: 20100115
  Serious: Yes (Life-Threatening, Hospitalization, Disabling, Other)
  Sender: FDA-Public Use
  Company Number: US-ASTRAZENECA-2009UW13285

PATIENT
  Age: 68 Year
  Sex: Male

DRUGS (1)
  1. CRESTOR [Suspect]
     Route: 048
     Dates: start: 20081001, end: 20090518

REACTIONS (6)
  - ANAEMIA [None]
  - ENDOCARDITIS [None]
  - HYPERKALAEMIA [None]
  - MYOCARDIAL INFARCTION [None]
  - RENAL FAILURE [None]
  - RHABDOMYOLYSIS [None]
